FAERS Safety Report 9498254 (Version 3)
Quarter: 2014Q2

REPORT INFORMATION
  Report Type: Spontaneous
  Country: US (occurrence: US)
  Receive Date: 20130904
  Receipt Date: 20140623
  Transmission Date: 20141212
  Serious: Yes (Hospitalization)
  Sender: FDA-Public Use
  Company Number: US-BAYER-2013-105973

PATIENT
  Age: 31 Year
  Sex: Female
  Weight: 70.3 kg

DRUGS (5)
  1. MIRENA [Suspect]
     Indication: CONTRACEPTION
     Dosage: 20 MCG/24HR, CONT
     Route: 015
     Dates: start: 20110302, end: 20120925
  2. MIRENA [Suspect]
     Indication: MENORRHAGIA
  3. ERYTHROMYCIN [Concomitant]
     Indication: CORNEAL ABRASION
     Dosage: UNK
     Route: 061
     Dates: start: 20111201
  4. CLARITIN [Concomitant]
     Dosage: UNK UNK, PRN
     Route: 048
     Dates: start: 20111201
  5. EFFEXOR [Concomitant]
     Dosage: 37.5 MG, UNK
     Route: 048
     Dates: start: 20111201

REACTIONS (10)
  - Uterine perforation [None]
  - Complication of pregnancy [None]
  - Pregnancy with contraceptive device [None]
  - Drug ineffective [None]
  - Infection [None]
  - Injury [None]
  - Medical device pain [None]
  - Device dislocation [None]
  - Depression [None]
  - Device dislocation [None]
